FAERS Safety Report 10244236 (Version 2)
Quarter: 2014Q2

REPORT INFORMATION
  Report Type: Spontaneous
  Country: ES (occurrence: ES)
  Receive Date: 20140618
  Receipt Date: 20140618
  Transmission Date: 20141212
  Serious: Yes (Other)
  Sender: FDA-Public Use
  Company Number: ES-ACTAVIS-2014-12644

PATIENT
  Age: 50 Year
  Sex: Female

DRUGS (2)
  1. PACLITAXEL (UNKNOWN) [Suspect]
     Indication: BREAST CANCER
     Dosage: 80 MG/M2, 1/WEEK
     Route: 065
  2. BIBF 1120 [Suspect]
     Indication: BREAST CANCER
     Dosage: 200 MG, 1/WEEK
     Route: 065

REACTIONS (6)
  - Onycholysis [Recovered/Resolved]
  - Paronychia [Recovered/Resolved]
  - Staphylococcal skin infection [Recovered/Resolved]
  - Onychomadesis [Recovered/Resolved]
  - Alopecia [Unknown]
  - Neuropathy peripheral [Unknown]
